FAERS Safety Report 6288223-0 (Version None)
Quarter: 2009Q3

REPORT INFORMATION
  Report Type: 
  Country: None (occurrence: None)
  Receive Date: 20090729
  Receipt Date: 20090723
  Transmission Date: 20100115
  Serious: Yes (Hospitalization)
  Sender: FDA-Public Use
  Company Number: TR-B.I. PHARMACEUTICALS,INC./RIDGEFIELD-2009-DE-05058GD

PATIENT

DRUGS (1)
  1. MELOXICAM [Suspect]

REACTIONS (2)
  - PLATELET FUNCTION TEST ABNORMAL [None]
  - UPPER GASTROINTESTINAL HAEMORRHAGE [None]
